FAERS Safety Report 13194527 (Version 1)
Quarter: 2017Q1

REPORT INFORMATION
  Report Type: Spontaneous
  Country: US (occurrence: US)
  Receive Date: 20170207
  Receipt Date: 20170207
  Transmission Date: 20170428
  Serious: No
  Sender: FDA-Public Use
  Company Number: US-JAZZ-2016-US-001670

PATIENT

DRUGS (14)
  1. PERCOCET [Concomitant]
     Active Substance: ACETAMINOPHEN\OXYCODONE HYDROCHLORIDE
  2. PRIALT [Suspect]
     Active Substance: ZICONOTIDE ACETATE
     Dosage: 0.095 ?G, QH
     Route: 037
     Dates: start: 20150819
  3. SUFENTANIL CITRATE. [Suspect]
     Active Substance: SUFENTANIL CITRATE
     Dosage: 8.34 MG, QH
     Route: 037
     Dates: start: 20150819
  4. CLONIDINE. [Suspect]
     Active Substance: CLONIDINE
     Dosage: UNK MG, QH
     Route: 037
     Dates: end: 20150723
  5. CLONIDINE. [Suspect]
     Active Substance: CLONIDINE
     Dosage: 7.3 MG, QH
     Route: 037
     Dates: start: 20150819
  6. SUFENTANIL CITRATE. [Suspect]
     Active Substance: SUFENTANIL CITRATE
     Dosage: UNK MG, QH
     Route: 037
     Dates: end: 20150723
  7. PRIALT [Suspect]
     Active Substance: ZICONOTIDE ACETATE
     Dosage: UNK ?G, QH
     Route: 037
     Dates: end: 20150723
  8. BUPIVACAINE. [Suspect]
     Active Substance: BUPIVACAINE
     Dosage: UNK ?G, QH
     Route: 037
     Dates: end: 20150723
  9. BUPIVACAINE. [Suspect]
     Active Substance: BUPIVACAINE
     Dosage: 0.562 ?G, QH
     Route: 037
     Dates: start: 20150723, end: 20150819
  10. BUPIVACAINE. [Suspect]
     Active Substance: BUPIVACAINE
     Dosage: 0.625 ?G, QH
     Route: 037
     Dates: start: 20150819
  11. CLONIDINE. [Suspect]
     Active Substance: CLONIDINE
     Dosage: 6.6 MG, QH
     Route: 037
     Dates: start: 20150723, end: 20150819
  12. SUFENTANIL CITRATE. [Suspect]
     Active Substance: SUFENTANIL CITRATE
     Dosage: 7.5 MG, QH
     Route: 037
     Dates: start: 20150723, end: 20150819
  13. PRIALT [Suspect]
     Active Substance: ZICONOTIDE ACETATE
     Dosage: 0.074 ?G, QH
     Route: 037
     Dates: start: 20150723, end: 20150819
  14. ZANAFLEX [Concomitant]
     Active Substance: TIZANIDINE HYDROCHLORIDE

REACTIONS (2)
  - Muscular weakness [Recovered/Resolved]
  - Hallucination, auditory [Recovered/Resolved]
